FAERS Safety Report 24125747 (Version 3)
Quarter: 2025Q1

REPORT INFORMATION
  Report Type: Spontaneous
  Country: US (occurrence: US)
  Receive Date: 20240723
  Receipt Date: 20250114
  Transmission Date: 20250409
  Serious: Yes (Hospitalization, Other)
  Sender: AVADEL CNS PHARMACEUTICALS, LLC
  Company Number: US-AVADEL CNS PHARMACEUTICALS, LLC-2024AVA00836

PATIENT
  Sex: Female

DRUGS (44)
  1. LUMRYZ [Suspect]
     Active Substance: SODIUM OXYBATE
     Indication: Narcolepsy
     Dosage: 6 G, ONCE NIGHTLY AT BEDTIME
     Route: 048
  2. LUMRYZ [Suspect]
     Active Substance: SODIUM OXYBATE
     Indication: Cataplexy
  3. LUMRYZ [Suspect]
     Active Substance: SODIUM OXYBATE
     Indication: Narcolepsy
     Dosage: 4.5 G, ONCE NIGHTLY AT BEDTIME
     Route: 048
  4. LUMRYZ [Suspect]
     Active Substance: SODIUM OXYBATE
     Indication: Cataplexy
  5. UNSPECIFIED INGREDIENT [Concomitant]
     Active Substance: UNSPECIFIED INGREDIENT
  6. ABILIFY [Concomitant]
     Active Substance: ARIPIPRAZOLE
     Dosage: 20 MG, 1X/DAY, IN THE MORNING
     Route: 048
  7. ATORVASTATIN [Concomitant]
     Active Substance: ATORVASTATIN
     Dosage: 40 MG, 1X/DAY
     Route: 048
  8. ATORVASTATIN [Concomitant]
     Active Substance: ATORVASTATIN
     Dosage: 80 MG, AT BEDTIME
     Route: 048
  9. D-MANNOSE (AZO) [Concomitant]
     Dosage: 2 TABLETS (1000 MG), 1X/DAY
     Route: 048
  10. D-MANNOSE (AZO) [Concomitant]
     Dosage: 500 MG, 1X/DAY
     Route: 048
  11. VITAMIN B [Concomitant]
     Active Substance: VITAMIN B
     Dosage: 0.4 MG, 1X/DAY
  12. BIOTIN PLUS KERATIN [Concomitant]
     Dosage: 100 MG, 1X/DAY
     Route: 048
  13. BIOTIN PLUS KERATIN [Concomitant]
     Dosage: 5000 ?G, 1X/DAY
     Route: 048
  14. CALCIUM CARBONATE [Concomitant]
     Active Substance: CALCIUM CARBONATE
     Dosage: 600 MG, 1X/DAY
     Route: 048
  15. KLONOPIN [Concomitant]
     Active Substance: CLONAZEPAM
     Dosage: 0.5 MG, 3X/DAY AS NEEDED
     Route: 048
  16. PRISTIQ EXTENDED-RELEASE [Concomitant]
     Active Substance: DESVENLAFAXINE SUCCINATE
     Dosage: 100 MG, 1X/DAY
     Route: 048
  17. FERROUS SULFATE [Concomitant]
     Active Substance: FERROUS SULFATE
     Dosage: 325 MG (65 MG IRON), EVERY OTHER DAY
     Route: 048
  18. LORATADINE [Concomitant]
     Active Substance: LORATADINE
     Dosage: 10 MG, 1X/DAY
  19. MAGNESIUM OXIDE [Concomitant]
     Active Substance: MAGNESIUM OXIDE
     Dosage: 400 MG, 1X/DAY
     Route: 048
  20. MAGNESIUM OXIDE [Concomitant]
     Active Substance: MAGNESIUM OXIDE
     Dosage: 500 MG, 1X/DAY
     Route: 048
  21. METHYLPHENIDATE [Concomitant]
     Active Substance: METHYLPHENIDATE
     Route: 048
  22. METHYLPHENIDATE [Concomitant]
     Active Substance: METHYLPHENIDATE
     Dosage: 54 MG, 1X/DAY
     Route: 048
  23. VITAMINS NOS [Concomitant]
     Active Substance: VITAMINS
     Dosage: UNK, 1X/DAY
  24. NABUMETONE [Concomitant]
     Active Substance: NABUMETONE
     Dosage: 500 MG, 2X/DAY
  25. FISH OIL [Concomitant]
     Active Substance: FISH OIL
     Dosage: 2400 MG, 1X/DAY
     Route: 048
  26. OMEPRAZOLE [Concomitant]
     Active Substance: OMEPRAZOLE
     Dosage: 40 MG, 1X/DAY
     Route: 048
  27. LYRICA [Concomitant]
     Active Substance: PREGABALIN
     Dosage: 100 MG, 3X/DAY
     Route: 048
  28. PROBIOTIC 10 BILLION DAILY MAINTENANCE [Concomitant]
     Dosage: 2 CAPSULES, 1X/DAY
     Route: 048
  29. SUNOSI [Concomitant]
     Active Substance: SOLRIAMFETOL
     Dosage: 1.5 TABLETS (112.5 MG), 1X/DAY WITH DINNER
     Route: 048
  30. TIZANIDINE [Concomitant]
     Active Substance: TIZANIDINE
     Route: 048
  31. TIZANIDINE [Concomitant]
     Active Substance: TIZANIDINE
     Dosage: 6 MG TWICE DAILY AND 4 MG WITH DINNER
     Route: 048
  32. VITAMIN A [Concomitant]
     Active Substance: VITAMIN A
     Dosage: 400 IU, 1X/DAY
     Route: 048
  33. VITAMIN A [Concomitant]
     Active Substance: VITAMIN A
     Dosage: 8000 IU, 1X/DAY
     Route: 048
  34. VITAMIN C [Concomitant]
     Active Substance: ASCORBIC ACID
     Dosage: 500 MG, 1X/DAY
     Route: 048
  35. VITAMIN C [Concomitant]
     Active Substance: ASCORBIC ACID
     Dosage: 1000 MG, 1X/DAY
     Route: 048
  36. VITAMIN D3 [Concomitant]
     Active Substance: CHOLECALCIFEROL
     Dosage: 50 ?G (2000 IU), 1X/DAY
     Route: 048
  37. ACETAMINOPHEN [Concomitant]
     Active Substance: ACETAMINOPHEN
     Dosage: 500 MG, EVERY 6 HOURS AS NEEDED
     Route: 048
  38. VITAMIN B COMPLEX WITH VITAMIN C [ASCORBIC ACID;VITAMIN B COMPLEX] [Concomitant]
     Dosage: 1 GUMMY, 1X/DAY (CHEWED)
     Route: 048
  39. ESTRADIOL [Concomitant]
     Active Substance: ESTRADIOL
     Route: 067
  40. FOLIC ACID [Concomitant]
     Active Substance: FOLIC ACID
     Dosage: 0.4 MG, 1X/DAY
     Route: 048
  41. NITROFURANTOIN MONOHYDRATE MACROCRYSTALS [Concomitant]
     Active Substance: NITROFURANTOIN\NITROFURANTOIN MONOHYDRATE
     Dosage: 100 MG, 2X/DAY
     Route: 048
  42. PROLIA [Concomitant]
     Active Substance: DENOSUMAB
     Dosage: 60 MG, EVERY 180 DAYS
     Route: 058
  43. SODIUM CHLORIDE [Concomitant]
     Active Substance: SODIUM CHLORIDE
     Dosage: 1 APPLICATION, 3X/DAY AS NEEDED
     Route: 045
  44. VITAMIN B12 [Concomitant]
     Active Substance: CYANOCOBALAMIN
     Dosage: 2500 ?G, 1X/DAY
     Route: 060

REACTIONS (16)
  - Radiculopathy [Recovering/Resolving]
  - Intervertebral disc protrusion [Unknown]
  - Type 2 diabetes mellitus [Unknown]
  - Cervical spinal stenosis [Unknown]
  - Hypotension [Unknown]
  - Feeling abnormal [Unknown]
  - Balance disorder [Unknown]
  - Gait disturbance [Unknown]
  - Asthenia [Unknown]
  - Fatigue [Unknown]
  - Feeling cold [Unknown]
  - Somnolence [Not Recovered/Not Resolved]
  - Hypertension [Recovering/Resolving]
  - Fall [Unknown]
  - Headache [Unknown]
  - Pain [Unknown]

NARRATIVE: CASE EVENT DATE: 20240101
